FAERS Safety Report 8306540-7 (Version None)
Quarter: 2012Q2

REPORT INFORMATION
  Report Type: 
  Country: None (occurrence: None)
  Receive Date: 20120424
  Receipt Date: 20120411
  Transmission Date: 20120825
  Serious: Yes (Hospitalization, Other)
  Sender: FDA-Public Use
  Company Number: FR-AMGEN-FRASP2012024203

PATIENT
  Age: 58 Year
  Sex: Female

DRUGS (17)
  1. ESCITALOPRAM [Concomitant]
     Indication: DEPRESSION
     Dosage: UNK
     Dates: start: 20120302, end: 20120315
  2. MABTHERA [Suspect]
     Indication: RHEUMATOID ARTHRITIS
     Dosage: UNK
     Dates: start: 20091001, end: 20111001
  3. FLODIL                             /00641902/ [Concomitant]
     Dosage: UNK
  4. PREDNISONE TAB [Concomitant]
     Dosage: UNK
  5. ACETAMINOPHEN [Concomitant]
     Dosage: UNK
  6. SULFARLEM [Concomitant]
     Dosage: UNK
  7. LYRICA [Suspect]
     Indication: PAIN
     Dosage: 125 MG, UNK
     Route: 048
     Dates: start: 20100101, end: 20120315
  8. NEXIUM [Suspect]
     Dosage: UNK
     Dates: start: 20100101, end: 20120315
  9. XANAX [Concomitant]
     Dosage: UNK
     Dates: start: 20120317
  10. VALSARTAN [Concomitant]
     Dosage: UNK
  11. METHOTREXATE SODIUM [Suspect]
     Indication: RHEUMATOID ARTHRITIS
     Dosage: 20 MG, WEEKLY
     Route: 058
     Dates: start: 19970101, end: 20120315
  12. ACTONEL [Suspect]
     Dosage: UNK
     Dates: start: 20100101, end: 20120315
  13. FOLIC ACID [Concomitant]
     Dosage: UNK
  14. ENBREL [Suspect]
     Indication: RHEUMATOID ARTHRITIS
     Dosage: 50 MG, WEEKLY
     Route: 058
     Dates: start: 20111018, end: 20120303
  15. AMITRIPTYLINE HCL [Suspect]
     Indication: DEPRESSION
     Dosage: 40MG/ML
     Dates: end: 20120303
  16. ZOLPIDEM TARTRATE [Concomitant]
     Dosage: UNK
  17. VOLTAREN [Concomitant]
     Dosage: UNK

REACTIONS (5)
  - OEDEMA PERIPHERAL [None]
  - HEADACHE [None]
  - CHILLS [None]
  - AGRANULOCYTOSIS [None]
  - ASTHENIA [None]
